FAERS Safety Report 9187182 (Version 2)
Quarter: 2013Q2

REPORT INFORMATION
  Report Type: Spontaneous
  Country: US (occurrence: US)
  Receive Date: 20130322
  Receipt Date: 20130424
  Transmission Date: 20140414
  Serious: No
  Sender: FDA-Public Use
  Company Number: US-TEVA-393262USA

PATIENT
  Age: 60 Year
  Sex: Male
  Weight: 158.9 kg

DRUGS (7)
  1. NUVIGIL [Suspect]
     Indication: CIRCADIAN RHYTHM SLEEP DISORDER
     Route: 048
     Dates: start: 20130108
  2. NUVIGIL [Suspect]
     Indication: EPSTEIN-BARR VIRUS INFECTION
     Dosage: 375 MILLIGRAM DAILY;
     Route: 048
  3. HYDROCHLOROTHIAZIDE [Concomitant]
     Indication: HYPERTENSION
     Route: 048
  4. LISINOPRIL [Concomitant]
     Indication: HYPERTENSION
     Dosage: 40 MILLIGRAM DAILY;
     Route: 048
  5. METOPROLOL [Concomitant]
     Indication: HYPERTENSION
     Dosage: 50 MILLIGRAM DAILY;
     Route: 048
  6. METFORMIN [Concomitant]
     Indication: DIABETES MELLITUS
     Dosage: 1000 MILLIGRAM DAILY;
     Route: 048
  7. ALLOPURINOL SODIUM [Concomitant]
     Indication: GOUT
     Dosage: 300 MILLIGRAM DAILY;
     Route: 048

REACTIONS (3)
  - Drug ineffective [Recovered/Resolved]
  - Somnolence [Recovered/Resolved]
  - Incorrect dose administered [Recovered/Resolved]
